FAERS Safety Report 15126613 (Version 1)
Quarter: 2018Q3

REPORT INFORMATION
  Report Type: Spontaneous
  Country: US (occurrence: US)
  Receive Date: 20180710
  Receipt Date: 20180710
  Transmission Date: 20181010
  Serious: Yes (Hospitalization)
  Sender: FDA-Public Use
  Company Number: US-OTSUKA-2018_015096

PATIENT
  Sex: Male

DRUGS (1)
  1. ABILIFY [Suspect]
     Active Substance: ARIPIPRAZOLE
     Indication: BIPOLAR DISORDER
     Dosage: 30 MG, QD
     Route: 065
     Dates: start: 200602, end: 201705

REACTIONS (5)
  - Gambling disorder [Not Recovered/Not Resolved]
  - Obsessive-compulsive disorder [Unknown]
  - Sexual dysfunction [Not Recovered/Not Resolved]
  - Mental disorder [Unknown]
  - Economic problem [Unknown]
